FAERS Safety Report 5364039-4 (Version None)
Quarter: 2007Q2

REPORT INFORMATION
  Report Type: 
  Country: None (occurrence: None)
  Receive Date: 20070530
  Receipt Date: 20070226
  Transmission Date: 20071010
  Serious: No
  Sender: FDA-Public Use
  Company Number: 2006PV024188

PATIENT
  Age: 68 Year
  Sex: Male
  Weight: 115.6672 kg

DRUGS (5)
  1. BYETTA [Suspect]
     Indication: DIABETES MELLITUS NON-INSULIN-DEPENDENT
     Dosage: 10 + 5 MCG; BID ; SC
     Route: 058
     Dates: start: 20051001, end: 20051101
  2. BYETTA [Suspect]
     Indication: DIABETES MELLITUS NON-INSULIN-DEPENDENT
     Dosage: 10 + 5 MCG; BID ; SC
     Route: 058
     Dates: start: 20051101
  3. ACTOS [Concomitant]
  4. FORTAMET ER [Concomitant]
  5. ASPIRIN [Concomitant]

REACTIONS (4)
  - BODY TEMPERATURE DECREASED [None]
  - CHILLS [None]
  - PERIPHERAL COLDNESS [None]
  - WEIGHT DECREASED [None]
